FAERS Safety Report 6938693-7 (Version None)
Quarter: 2010Q3

REPORT INFORMATION
  Report Type: 
  Country: None (occurrence: None)
  Receive Date: 20100824
  Receipt Date: 20100811
  Transmission Date: 20110219
  Serious: Yes (Other)
  Sender: FDA-Public Use
  Company Number: PHHY2010US53185

PATIENT
  Age: 93 Year
  Sex: Male

DRUGS (1)
  1. TEKTURNA HCT [Suspect]
     Dosage: 300/25 MG, UNK

REACTIONS (1)
  - DYSPHAGIA [None]
